FAERS Safety Report 6460877-5 (Version None)
Quarter: 2009Q4

REPORT INFORMATION
  Report Type: 
  Country: None (occurrence: None)
  Receive Date: 20091125
  Receipt Date: 20091125
  Transmission Date: 20100525
  Serious: No
  Sender: FDA-Public Use
  Company Number: None

PATIENT
  Age: 54 Year
  Sex: Male
  Weight: 92.5338 kg

DRUGS (1)
  1. SEROQUEL [Suspect]
     Indication: BIPOLAR II DISORDER
     Dosage: TAKE 2 TABS AT BEDTIME PO
     Route: 048
     Dates: start: 20061126, end: 20091028

REACTIONS (1)
  - TARDIVE DYSKINESIA [None]
